FAERS Safety Report 20547471 (Version 1)
Quarter: 2022Q1

REPORT INFORMATION
  Report Type: Spontaneous
  Country: US (occurrence: US)
  Receive Date: 20220303
  Receipt Date: 20220303
  Transmission Date: 20220424
  Serious: No
  Sender: FDA-Public Use
  Company Number: US-BIOGEN-2020BI00914407

PATIENT
  Sex: Female

DRUGS (6)
  1. TECFIDERA [Suspect]
     Active Substance: DIMETHYL FUMARATE
     Indication: Multiple sclerosis
     Route: 048
     Dates: start: 20200520
  2. TECFIDERA [Suspect]
     Active Substance: DIMETHYL FUMARATE
     Dosage: MAINTENANCE DOSE
     Route: 065
     Dates: start: 20200410, end: 202201
  3. TECFIDERA [Suspect]
     Active Substance: DIMETHYL FUMARATE
     Route: 065
     Dates: start: 20200410, end: 20220217
  4. ALBUTEROL [Concomitant]
     Active Substance: ALBUTEROL
     Indication: Product used for unknown indication
     Route: 065
  5. TUMERSAID [Concomitant]
     Indication: Product used for unknown indication
     Route: 065
  6. ALLEGRA [Concomitant]
     Active Substance: FEXOFENADINE HYDROCHLORIDE
     Indication: Product used for unknown indication
     Route: 065

REACTIONS (4)
  - Muscle spasms [Not Recovered/Not Resolved]
  - Muscular weakness [Not Recovered/Not Resolved]
  - Multiple sclerosis relapse [Recovered/Resolved]
  - Rash [Not Recovered/Not Resolved]

NARRATIVE: CASE EVENT DATE: 20210101
